FAERS Safety Report 25756028 (Version 2)
Quarter: 2025Q4

REPORT INFORMATION
  Report Type: Spontaneous
  Country: EU (occurrence: EU)
  Receive Date: 20250903
  Receipt Date: 20251023
  Transmission Date: 20260118
  Serious: Yes (Other)
  Sender: PFIZER
  Company Number: EU-PFIZER INC-PV202500104728

PATIENT
  Sex: Male
  Weight: 74 kg

DRUGS (2)
  1. BESPONSA [Suspect]
     Active Substance: INOTUZUMAB OZOGAMICIN
     Indication: Acute lymphocytic leukaemia
     Dosage: 0.8 MG/M2, CYCLIC (DAY 1)
  2. BESPONSA [Suspect]
     Active Substance: INOTUZUMAB OZOGAMICIN
     Dosage: 0.5 MG/M2, CYCLIC (DAY8 AND DAY15, 4 VIALS PER CYCLE (2 TO 3 CYCLES SCHEDULED))

REACTIONS (1)
  - Hepatic cytolysis [Recovering/Resolving]
